FAERS Safety Report 10405360 (Version 1)
Quarter: 2014Q3

REPORT INFORMATION
  Report Type: Spontaneous
  Country: DE (occurrence: None)
  Receive Date: 20140820
  Receipt Date: 20140820
  Transmission Date: 20150326
  Serious: Yes (Other)
  Sender: FDA-Public Use
  Company Number: DE-H14001-14-00416

PATIENT
  Age: 59 Year
  Sex: Male

DRUGS (1)
  1. RIBOIRINO (IRINOTECAN) (UNKNOWN) (IRINOT ECAN) [Suspect]
     Active Substance: IRINOTECAN HYDROCHLORIDE
     Indication: NEOPLASM MALIGNANT
     Dosage: NOT OTHERWISE SPECIFIED
     Route: 042

REACTIONS (2)
  - Abdominal pain [None]
  - Circulatory collapse [None]

NARRATIVE: CASE EVENT DATE: 20140811
